FAERS Safety Report 10378153 (Version 2)
Quarter: 2014Q3

REPORT INFORMATION
  Report Type: Spontaneous
  Country: JP (occurrence: JP)
  Receive Date: 20140812
  Receipt Date: 20140901
  Transmission Date: 20150326
  Serious: Yes (Hospitalization)
  Sender: FDA-Public Use
  Company Number: JP-ELI_LILLY_AND_COMPANY-JP201408002190

PATIENT
  Age: 79 Year
  Sex: Female

DRUGS (5)
  1. TRICHLORMETHIAZIDE [Concomitant]
     Active Substance: TRICHLORMETHIAZIDE
     Indication: HYPERTENSION
     Route: 048
  2. DIOVAN [Concomitant]
     Active Substance: VALSARTAN
     Indication: HYPERTENSION
  3. EVISTA [Suspect]
     Active Substance: RALOXIFENE HYDROCHLORIDE
     Indication: OSTEOPOROSIS
     Dosage: UNK
     Route: 048
     Dates: start: 2008, end: 20140518
  4. TAKEPRON [Concomitant]
     Active Substance: LANSOPRAZOLE
     Indication: DYSPEPSIA
  5. ROCORNAL [Concomitant]
     Indication: ANGINA PECTORIS

REACTIONS (1)
  - Cardiac failure chronic [Recovered/Resolved]

NARRATIVE: CASE EVENT DATE: 20140518
